FAERS Safety Report 8529896-9 (Version None)
Quarter: 2012Q3

REPORT INFORMATION
  Report Type: 
  Country: None (occurrence: None)
  Receive Date: 20120723
  Receipt Date: 20120717
  Transmission Date: 20120928
  Serious: Yes (Other)
  Sender: FDA-Public Use
  Company Number: NL-US-EMD SERONO, INC.-7147957

PATIENT
  Sex: Female
  Weight: 94 kg

DRUGS (8)
  1. REBIF [Suspect]
     Indication: MULTIPLE SCLEROSIS
     Route: 058
     Dates: start: 20110401, end: 20120601
  2. METOPROLOL SUCCINATE [Concomitant]
     Indication: HYPERTENSION
     Route: 048
  3. TRIAMTEREEN (TRIAMTERENE)/ HYDROCHOLOOTHIAZIDE (HYDROCHLOROTHIAZIDE) [Concomitant]
     Indication: HYPERTENSION
     Dosage: 50/25 MG
     Route: 048
  4. AMITRIPTYLINE HCL [Concomitant]
     Indication: PAIN
     Route: 048
  5. PRAVASTATIN SODIUM [Concomitant]
     Indication: BLOOD CHOLESTEROL INCREASED
     Route: 048
  6. SERTRALINE HYDROCHLORIDE [Concomitant]
     Indication: DEPRESSION
     Route: 048
  7. IBUPROFEN [Concomitant]
     Indication: ADVERSE EVENT
     Route: 048
     Dates: start: 20110401, end: 20110601
  8. OMEPRAZOLE [Concomitant]
     Indication: GASTRITIS PROPHYLAXIS
     Route: 048

REACTIONS (2)
  - DIABETES MELLITUS [None]
  - DRUG INEFFECTIVE [None]
